FAERS Safety Report 6237624-5 (Version None)
Quarter: 2009Q2

REPORT INFORMATION
  Report Type: 
  Country: None (occurrence: None)
  Receive Date: 20090619
  Receipt Date: 20090610
  Transmission Date: 20091009
  Serious: Yes (Hospitalization, Disabling, Other)
  Sender: FDA-Public Use
  Company Number: US-MERCK-0902USA01601

PATIENT
  Age: 48 Year
  Sex: Female

DRUGS (6)
  1. FOSAMAX [Suspect]
     Indication: OSTEOPOROSIS
     Route: 048
     Dates: start: 20010601
  2. FOSAMAX [Suspect]
     Route: 048
     Dates: start: 20030101
  3. FOSAMAX [Suspect]
     Route: 048
     Dates: start: 20040101, end: 20070401
  4. FOSAMAX [Suspect]
     Indication: OSTEOPENIA
     Route: 048
     Dates: start: 20010601
  5. FOSAMAX [Suspect]
     Route: 048
     Dates: start: 20030101
  6. FOSAMAX [Suspect]
     Route: 048
     Dates: start: 20040101, end: 20070401

REACTIONS (8)
  - ANXIETY [None]
  - ARTHROPATHY [None]
  - BACK DISORDER [None]
  - DEPRESSION [None]
  - HYPERTENSION [None]
  - OSTEOMYELITIS [None]
  - OSTEONECROSIS [None]
  - UPPER LIMB FRACTURE [None]
